FAERS Safety Report 20849738 (Version 3)
Quarter: 2022Q2

REPORT INFORMATION
  Report Type: Report from Study
  Country: IT (occurrence: IT)
  Receive Date: 20220519
  Receipt Date: 20220607
  Transmission Date: 20220721
  Serious: Yes (Hospitalization)
  Sender: FDA-Public Use
  Company Number: IT-GLAXOSMITHKLINE-IT2022GSK077313

PATIENT

DRUGS (5)
  1. NIRAPARIB [Suspect]
     Active Substance: NIRAPARIB
     Indication: Squamous cell carcinoma of head and neck
     Dosage: 100 MG, QD
     Route: 048
     Dates: start: 20211118, end: 20220106
  2. DOSTARLIMAB [Suspect]
     Active Substance: DOSTARLIMAB
     Indication: Squamous cell carcinoma of head and neck
     Dosage: 1000 MG, Z- EVERY 6 WEEKS
     Route: 042
     Dates: start: 20211215, end: 20211215
  3. ACETAZOLAMIDE [Concomitant]
     Active Substance: ACETAZOLAMIDE
     Indication: Hypertension
     Dosage: 500 MG, BID
     Route: 048
     Dates: start: 20220107
  4. OLMESARTAN [Concomitant]
     Active Substance: OLMESARTAN
     Indication: Hypertension
     Dosage: 10 MG, QD
     Route: 048
     Dates: start: 20210607
  5. PREDNISONE [Concomitant]
     Active Substance: PREDNISONE
     Indication: Neuritis
     Dosage: 5 MG, QD
     Route: 048
     Dates: start: 20220107

REACTIONS (2)
  - Platelet count decreased [Recovering/Resolving]
  - Bone marrow failure [Recovering/Resolving]

NARRATIVE: CASE EVENT DATE: 20220510
